FAERS Safety Report 25763580 (Version 1)
Quarter: 2025Q3

REPORT INFORMATION
  Report Type: Spontaneous
  Country: US (occurrence: US)
  Receive Date: 20250905
  Receipt Date: 20250905
  Transmission Date: 20251021
  Serious: No
  Sender: DOMPE FARMACEUTICI
  Company Number: US-FARMAPROD-202410-3681

PATIENT
  Sex: Male

DRUGS (1)
  1. OXERVATE [Suspect]
     Active Substance: CENEGERMIN-BKBJ
     Indication: Neurotrophic keratopathy
     Route: 047
     Dates: start: 20240923

REACTIONS (4)
  - Eye pain [Recovering/Resolving]
  - Dry eye [Recovering/Resolving]
  - Asthenopia [Recovering/Resolving]
  - Lacrimation increased [Recovering/Resolving]
